FAERS Safety Report 6274633-4 (Version None)
Quarter: 2009Q3

REPORT INFORMATION
  Report Type: 
  Country: None (occurrence: None)
  Receive Date: 20090717
  Receipt Date: 20090702
  Transmission Date: 20100115
  Serious: Yes (Hospitalization)
  Sender: FDA-Public Use
  Company Number: TPA2009A01735

PATIENT
  Age: 77 Year
  Sex: Male
  Weight: 114.3065 kg

DRUGS (10)
  1. ACTOS [Suspect]
     Indication: TYPE 2 DIABETES MELLITUS
     Dosage: 45 MG, 1 IN 1 D, PER ORAL
     Route: 048
     Dates: start: 20000101
  2. GARLIC (ALLIUM SATIVUM) [Concomitant]
  3. VITAMIN D [Concomitant]
  4. MULTIVITAMIN [Concomitant]
  5. ZOLPIDEM [Concomitant]
  6. AMIODARONE HCL [Concomitant]
  7. CARDIA XT (ALL OTHER NON-THERAPEUTIC PRODUCTS) [Concomitant]
  8. ASPIRIN [Concomitant]
  9. CHLOR-TRIMETON [Concomitant]
  10. FISH OIL (FISH OIL) [Concomitant]

REACTIONS (4)
  - ARTHRALGIA [None]
  - CORONARY ARTERY BYPASS [None]
  - RENAL IMPAIRMENT [None]
  - THYROID DISORDER [None]
